FAERS Safety Report 15506667 (Version 2)
Quarter: 2018Q4

REPORT INFORMATION
  Report Type: Other
  Country: AU (occurrence: AU)
  Receive Date: 20181016
  Receipt Date: 20181018
  Transmission Date: 20190205
  Serious: Yes (Other)
  Sender: FDA-Public Use
  Company Number: AU-APOTEX-2018AP022612

PATIENT
  Age: 48 Year
  Sex: Female

DRUGS (12)
  1. APO-RABEPRAZOLE [Suspect]
     Active Substance: RABEPRAZOLE SODIUM
     Indication: PANCREATITIS ACUTE
     Dosage: UNK
     Route: 048
     Dates: start: 20180605
  2. CALCIUM + VITAMIN D                /00944201/ [Concomitant]
     Active Substance: CALCIUM CARBONATE\CHOLECALCIFEROL
     Indication: GENERAL PHYSICAL CONDITION
     Dosage: UNK
     Route: 048
     Dates: start: 20180618
  3. VITAMIN B1 [Concomitant]
     Active Substance: THIAMINE HYDROCHLORIDE
     Indication: ALCOHOL WITHDRAWAL SYNDROME
     Dosage: UNK
     Route: 048
     Dates: start: 20180618
  4. VITAMIN B1 [Concomitant]
     Active Substance: THIAMINE HYDROCHLORIDE
     Dosage: UNK
     Route: 048
     Dates: start: 20180618, end: 20180727
  5. APO-SERTRALINE [Suspect]
     Active Substance: SERTRALINE HYDROCHLORIDE
     Indication: DEPRESSION
     Dosage: UNK
     Route: 048
     Dates: start: 20180605
  6. APO-SERTRALINE [Suspect]
     Active Substance: SERTRALINE HYDROCHLORIDE
     Indication: ANXIETY
  7. VITAMIN D                          /00107901/ [Concomitant]
     Active Substance: ERGOCALCIFEROL
     Indication: GENERAL PHYSICAL CONDITION
     Dosage: UNK
     Route: 048
     Dates: start: 20180618
  8. FISH OIL [Concomitant]
     Active Substance: FISH OIL
     Indication: GENERAL PHYSICAL CONDITION
     Dosage: UNK
     Route: 048
     Dates: start: 20180618
  9. VITAMIN C [Concomitant]
     Active Substance: ASCORBIC ACID
     Dosage: UNK
     Route: 048
     Dates: start: 20180728
  10. VITAMIN C [Concomitant]
     Active Substance: ASCORBIC ACID
     Indication: GENERAL PHYSICAL CONDITION
     Dosage: UNK
     Route: 048
     Dates: start: 20180618, end: 20180727
  11. APO-QUETIAPINE [Suspect]
     Active Substance: QUETIAPINE
     Indication: INSOMNIA
     Dosage: UNK
     Route: 048
     Dates: start: 20180608
  12. APO-NALTREXONE [Suspect]
     Active Substance: NALTREXONE HYDROCHLORIDE
     Indication: ALCOHOL USE
     Dosage: UNK
     Route: 048
     Dates: start: 20180608

REACTIONS (1)
  - Drug level increased [Not Recovered/Not Resolved]

NARRATIVE: CASE EVENT DATE: 20180701
